FAERS Safety Report 11264663 (Version 2)
Quarter: 2015Q3

REPORT INFORMATION
  Report Type: Spontaneous
  Country: US (occurrence: US)
  Receive Date: 20150713
  Receipt Date: 20150812
  Transmission Date: 20151125
  Serious: No
  Sender: FDA-Public Use
  Company Number: US-PFIZER INC-2015225758

PATIENT
  Age: 72 Year
  Sex: Male

DRUGS (9)
  1. TRAZAMINE [Concomitant]
     Active Substance: CHOLINE\TRAZODONE HYDROCHLORIDE
     Dosage: 1 DF, 1X/DAY
     Route: 048
  2. DURAGESIC [Concomitant]
     Active Substance: FENTANYL
     Dosage: 1 DF, EVERY 72 HOURS
     Route: 062
     Dates: start: 20150630
  3. CARAFATE [Concomitant]
     Active Substance: SUCRALFATE
     Dosage: 10 MG, 4X/DAY
     Route: 048
  4. COMPAZINE [Concomitant]
     Active Substance: PROCHLORPERAZINE MALEATE
     Dosage: 10 MG, UNK ( 1 TABLET ORALLY EVERY 4-6 HOURS PRN)
     Route: 048
     Dates: start: 20140912
  5. AMLODIPINE [Concomitant]
     Active Substance: AMLODIPINE BESYLATE
     Dosage: 10 MG, 1X/DAY
     Route: 048
  6. OXYCODONE [Concomitant]
     Active Substance: OXYCODONE
     Dosage: 0.25 ML, UNK
     Route: 048
     Dates: start: 20150619
  7. SUTENT [Suspect]
     Active Substance: SUNITINIB MALATE
     Indication: RENAL CANCER
     Dosage: 50 MG, 1X/DAY
     Dates: start: 20141213
  8. METOPROLOL SUCCINATE. [Concomitant]
     Active Substance: METOPROLOL SUCCINATE
     Dosage: 200 MG, 1X/DAY
     Route: 048
  9. ASPIRIN. [Concomitant]
     Active Substance: ASPIRIN
     Dosage: 81 MG, 1X/DAY
     Route: 048

REACTIONS (1)
  - Dysphagia [Not Recovered/Not Resolved]

NARRATIVE: CASE EVENT DATE: 201502
